FAERS Safety Report 16642187 (Version 3)
Quarter: 2020Q3

REPORT INFORMATION
  Report Type: Other
  Country: US (occurrence: US)
  Receive Date: 20190729
  Receipt Date: 20200716
  Transmission Date: 20201102
  Serious: Yes (Other)
  Sender: FDA-Public Use
  Company Number: US-ROCHE-2358526

PATIENT
  Age: 58 Year
  Sex: Female
  Weight: 68.55 kg

DRUGS (12)
  1. LISINOPRIL. [Concomitant]
     Active Substance: LISINOPRIL
  2. PROLIA [Concomitant]
     Active Substance: DENOSUMAB
  3. PROTONIX [Concomitant]
     Active Substance: PANTOPRAZOLE SODIUM
  4. OCREVUS [Suspect]
     Active Substance: OCRELIZUMAB
     Indication: RELAPSING-REMITTING MULTIPLE SCLEROSIS
     Dosage: FIRST HALF INFUSION ;ONGOING: NO
     Route: 042
     Dates: start: 20190620
  5. TOPROL XL [Concomitant]
     Active Substance: METOPROLOL SUCCINATE
  6. FOLIC ACID. [Concomitant]
     Active Substance: FOLIC ACID
  7. OCREVUS [Suspect]
     Active Substance: OCRELIZUMAB
     Indication: SECONDARY PROGRESSIVE MULTIPLE SCLEROSIS
     Dosage: 2ND HALF INFUSION ;ONGOING: UNKNOWN
     Route: 042
     Dates: start: 20190705
  8. OCREVUS [Suspect]
     Active Substance: OCRELIZUMAB
     Route: 042
     Dates: start: 20190623
  9. FLECAINIDE [Concomitant]
     Active Substance: FLECAINIDE
  10. CARISOPRODOL. [Concomitant]
     Active Substance: CARISOPRODOL
  11. HYDROCODONE [Concomitant]
     Active Substance: HYDROCODONE
  12. IMITREX [Concomitant]
     Active Substance: SUMATRIPTAN SUCCINATE

REACTIONS (9)
  - White blood cell count decreased [Not Recovered/Not Resolved]
  - Blood immunoglobulin G decreased [Unknown]
  - Blood sodium decreased [Recovering/Resolving]
  - Blood folate decreased [Unknown]
  - Urinary tract infection [Not Recovered/Not Resolved]
  - Herpes zoster [Recovered/Resolved]
  - Blood iron decreased [Unknown]
  - Multiple sclerosis relapse [Recovered/Resolved]
  - Nasopharyngitis [Not Recovered/Not Resolved]

NARRATIVE: CASE EVENT DATE: 201907
